FAERS Safety Report 8494075-0 (Version None)
Quarter: 2012Q2

REPORT INFORMATION
  Report Type: 
  Country: None (occurrence: None)
  Receive Date: 20120629
  Receipt Date: 20120629
  Transmission Date: 20120825
  Serious: Yes (Death)
  Sender: FDA-Public Use
  Company Number: None

PATIENT
  Age: 55 Year
  Sex: Female
  Weight: 70.3075 kg

DRUGS (1)
  1. CYMBALTA [Suspect]
     Indication: MENOPAUSAL SYMPTOMS
     Dosage: 60 MG
     Dates: start: 20061001, end: 20110901

REACTIONS (1)
  - COMPLETED SUICIDE [None]
